FAERS Safety Report 15227304 (Version 3)
Quarter: 2018Q3

REPORT INFORMATION
  Report Type: Spontaneous
  Country: US (occurrence: US)
  Receive Date: 20180801
  Receipt Date: 20180817
  Transmission Date: 20181010
  Serious: Yes (Other)
  Sender: FDA-Public Use
  Company Number: US-BAYER-2018-137402

PATIENT
  Age: 61 Year
  Sex: Female

DRUGS (2)
  1. ADEMPAS [Suspect]
     Active Substance: RIOCIGUAT
     Indication: PRODUCT USED FOR UNKNOWN INDICATION
     Dosage: UNK
  2. TREPROSTINIL SODIUM [Suspect]
     Active Substance: TREPROSTINIL SODIUM
     Indication: PULMONARY ARTERIAL HYPERTENSION
     Dosage: 72 ?G, QID
     Route: 055
     Dates: start: 20120905

REACTIONS (10)
  - Throat irritation [Unknown]
  - Malaise [Unknown]
  - Mobility decreased [Unknown]
  - Multiple allergies [Unknown]
  - Diarrhoea [Unknown]
  - Dyspnoea [Unknown]
  - Peripheral swelling [Unknown]
  - Headache [Unknown]
  - Pulmonary hypertension [Unknown]
  - Nausea [Unknown]

NARRATIVE: CASE EVENT DATE: 201802
